FAERS Safety Report 9680127 (Version 2)
Quarter: 2013Q4

REPORT INFORMATION
  Report Type: Spontaneous
  Country: US (occurrence: US)
  Receive Date: 20131111
  Receipt Date: 20131219
  Transmission Date: 20140711
  Serious: No
  Sender: FDA-Public Use
  Company Number: US-009507513-1311USA001288

PATIENT
  Sex: Female

DRUGS (1)
  1. BETAMETHASONE [Suspect]
     Dosage: A SINGLE COURSE
     Route: 048

REACTIONS (1)
  - Exposure during pregnancy [Recovered/Resolved]
